FAERS Safety Report 17130398 (Version 4)
Quarter: 2020Q1

REPORT INFORMATION
  Report Type: Spontaneous
  Country: US (occurrence: US)
  Receive Date: 20191209
  Receipt Date: 20200217
  Transmission Date: 20200409
  Serious: Yes (Other)
  Sender: FDA-Public Use
  Company Number: US-AMERICAN REGENT INC-2019002690

PATIENT
  Age: 20 Year
  Sex: Female

DRUGS (2)
  1. TPN [Concomitant]
     Active Substance: AMINO ACIDS\DEXTROSE\ELECTROLYTES NOS\SOYBEAN OIL
     Indication: PRODUCT USED FOR UNKNOWN INDICATION
     Dosage: UNK
     Route: 051
  2. SELENIOUS ACID INJECTION, USP (0517-6560-01) [Suspect]
     Active Substance: SELENIOUS ACID
     Indication: PARENTERAL NUTRITION
     Dosage: 60 MICROGRAM
     Route: 042
     Dates: start: 20191018, end: 20191118

REACTIONS (1)
  - Alopecia [Recovering/Resolving]

NARRATIVE: CASE EVENT DATE: 201910
